FAERS Safety Report 23252324 (Version 1)
Quarter: 2023Q4

REPORT INFORMATION
  Report Type: Spontaneous
  Country: FR (occurrence: FR)
  Receive Date: 20231201
  Receipt Date: 20231201
  Transmission Date: 20240110
  Serious: Yes (Hospitalization)
  Sender: FDA-Public Use
  Company Number: FR-ROCHE-3433837

PATIENT
  Age: 79 Year
  Sex: Male
  Weight: 65 kg

DRUGS (13)
  1. OXALIPLATIN [Suspect]
     Active Substance: OXALIPLATIN
     Indication: Colorectal cancer metastatic
     Dosage: ON 26/SEP/2023, HE ADMINISTERED LAST DOSE (174 MG) BEFORE SAE CYCLE 23
     Route: 065
     Dates: start: 20220621
  2. OXALIPLATIN [Suspect]
     Active Substance: OXALIPLATIN
     Route: 065
     Dates: start: 20230926
  3. CAPECITABINE [Suspect]
     Active Substance: CAPECITABINE
     Indication: Colorectal cancer metastatic
     Dosage: ROA - UNK
     Dates: start: 20230913
  4. CAPECITABINE [Suspect]
     Active Substance: CAPECITABINE
     Dosage: ON 13/SEP/2023, HE ADMINISTERED LAST DOSE BEFORE SAE (3300 MG)?FOA - TABLET (UNCOATED, ORAL)?ROA - O
     Dates: start: 20220621
  5. ATEZOLIZUMAB [Suspect]
     Active Substance: ATEZOLIZUMAB
     Indication: Colorectal cancer metastatic
     Dosage: ON 26/SEP/2023, HE ADMINISTERED LAST DOSE (1200 MG) BEFORE SAE CYCLE 23?FOA - UNKNOWN?ROA - UNK
     Dates: start: 20220621
  6. BEVACIZUMAB [Suspect]
     Active Substance: BEVACIZUMAB
     Indication: Colorectal cancer metastatic
     Dosage: ROA - UNK
     Dates: start: 20230926
  7. BEVACIZUMAB [Suspect]
     Active Substance: BEVACIZUMAB
     Dosage: ON 26/SEP/2023, HE ADMINISTERED LAST DOSE (520 MG) BEFORE SAE CYCLE 23?FOA - INFUSION?ROA - UNK
     Dates: start: 20220802
  8. CARAFATE [Concomitant]
     Active Substance: SUCRALFATE
     Indication: Product used for unknown indication
  9. Aquasyal [Concomitant]
     Indication: Product used for unknown indication
  10. CETALKONIUM CHLORIDE\CHOLINE SALICYLATE [Concomitant]
     Active Substance: CETALKONIUM CHLORIDE\CHOLINE SALICYLATE
     Indication: Product used for unknown indication
  11. GAVISCON [Concomitant]
     Active Substance: ALUMINUM HYDROXIDE\MAGNESIUM CARBONATE
     Indication: Product used for unknown indication
     Dosage: ROA - UNK
  12. LIPTRUZET [Concomitant]
     Active Substance: ATORVASTATIN CALCIUM\EZETIMIBE
     Indication: Product used for unknown indication
     Dosage: ROA - UNK
  13. ENALAPRIL MALEATE\LERCANIDIPINE HYDROCHLORIDE [Concomitant]
     Active Substance: ENALAPRIL MALEATE\LERCANIDIPINE HYDROCHLORIDE
     Indication: Product used for unknown indication
     Dosage: ROA - UNK

REACTIONS (1)
  - Retinal detachment [Not Recovered/Not Resolved]

NARRATIVE: CASE EVENT DATE: 20231012
